FAERS Safety Report 23271707 (Version 1)
Quarter: 2023Q4

REPORT INFORMATION
  Report Type: Report from Study
  Country: US (occurrence: US)
  Receive Date: 20231207
  Receipt Date: 20231207
  Transmission Date: 20240110
  Serious: Yes (Hospitalization)
  Sender: FDA-Public Use
  Company Number: US-Eisai Medical Research-EC-2023-140211

PATIENT
  Age: 72 Year
  Sex: Female

DRUGS (2)
  1. LENVIMA [Suspect]
     Active Substance: LENVATINIB
     Indication: Renal cancer
     Route: 048
     Dates: end: 202306
  2. LENVIMA [Suspect]
     Active Substance: LENVATINIB
     Route: 048
     Dates: start: 2023, end: 202311

REACTIONS (12)
  - Blood pressure increased [Recovering/Resolving]
  - Epistaxis [Recovering/Resolving]
  - Red blood cell count decreased [Not Recovered/Not Resolved]
  - Myalgia [Unknown]
  - Oropharyngeal pain [Unknown]
  - Headache [Unknown]
  - Abdominal pain upper [Not Recovered/Not Resolved]
  - Pain [Not Recovered/Not Resolved]
  - Aphonia [Not Recovered/Not Resolved]
  - Migraine [Unknown]
  - Weight decreased [Not Recovered/Not Resolved]
  - Fluid retention [Recovered/Resolved]

NARRATIVE: CASE EVENT DATE: 20230101
